FAERS Safety Report 7251562-0 (Version None)
Quarter: 2011Q1

REPORT INFORMATION
  Report Type: 
  Country: None (occurrence: None)
  Receive Date: 20110128
  Receipt Date: 20110120
  Transmission Date: 20110831
  Serious: Yes (Other)
  Sender: FDA-Public Use
  Company Number: CA-CEPHALON-2011000430

PATIENT
  Age: 62 Year
  Sex: Male
  Weight: 78 kg

DRUGS (9)
  1. DIGOXIN [Concomitant]
  2. HYDROCHLOROTHIAZIDE [Concomitant]
  3. LIPITOR [Concomitant]
  4. DIAMICRON MR [Concomitant]
  5. SLOW-K [Concomitant]
  6. COLACE [Concomitant]
  7. ALERTEC [Suspect]
     Route: 048
  8. METFORMIN [Concomitant]
  9. WARFARIN [Concomitant]

REACTIONS (2)
  - ABNORMAL BEHAVIOUR [None]
  - MENTAL STATUS CHANGES [None]
